FAERS Safety Report 4284673-2 (Version None)
Quarter: 2004Q1

REPORT INFORMATION
  Report Type: 
  Country: None (occurrence: None)
  Receive Date: 20040203
  Receipt Date: 20031222
  Transmission Date: 20041129
  Serious: Yes (Death)
  Sender: FDA-Public Use
  Company Number: WAES 0401USA00144

PATIENT
  Age: 74 Year
  Sex: Male

DRUGS (3)
  1. ZOVIRAX [Concomitant]
     Route: 042
     Dates: start: 20031215, end: 20031217
  2. PEPCID [Suspect]
     Route: 042
     Dates: start: 20031219, end: 20031230
  3. PEPCID [Suspect]
     Route: 042
     Dates: start: 20031126, end: 20031218

REACTIONS (3)
  - COLON CANCER METASTATIC [None]
  - DEATH [None]
  - DEPRESSED LEVEL OF CONSCIOUSNESS [None]
